FAERS Safety Report 4705279-4 (Version None)
Quarter: 2005Q3

REPORT INFORMATION
  Report Type: 
  Country: None (occurrence: None)
  Receive Date: 20050701
  Receipt Date: 20050627
  Transmission Date: 20060218
  Serious: Yes (Hospitalization)
  Sender: FDA-Public Use
  Company Number: RU-BRISTOL-MYERS SQUIBB COMPANY-13017207

PATIENT
  Age: 72 Year
  Sex: Male

DRUGS (3)
  1. CAPTOPRIL [Suspect]
     Indication: CARDIAC DISORDER
  2. CILAZAPRIL [Suspect]
     Indication: CARDIAC DISORDER
  3. ENALAPRIL [Suspect]
     Indication: CARDIAC DISORDER

REACTIONS (1)
  - AZOTAEMIA [None]
